FAERS Safety Report 19269061 (Version 1)
Quarter: 2021Q2

REPORT INFORMATION
  Report Type: Spontaneous
  Country: FR (occurrence: FR)
  Receive Date: 20210517
  Receipt Date: 20210517
  Transmission Date: 20210717
  Serious: Yes (Hospitalization, Other)
  Sender: FDA-Public Use
  Company Number: FR-PFIZER INC-2021496922

PATIENT
  Age: 26 Year
  Sex: Male

DRUGS (4)
  1. AZITHROMYCINE [Suspect]
     Active Substance: AZITHROMYCIN
     Indication: MYCOBACTERIUM ABSCESSUS INFECTION
     Dosage: 500 MG, 1X/DAY
  2. VIMPAT [Suspect]
     Active Substance: LACOSAMIDE
     Indication: EPILEPSY
     Dosage: 200 MG, 1X/DAY
     Dates: start: 201905
  3. LAMPRENE [Suspect]
     Active Substance: CLOFAZIMINE
     Indication: MYCOBACTERIUM ABSCESSUS INFECTION
     Dosage: 100 UG, 1X/DAY
  4. IMUKIN [Suspect]
     Active Substance: INTERFERON GAMMA
     Indication: IMMUNODEFICIENCY
     Dosage: 100 UG, EVERY 3 WEEKS
     Dates: start: 20190524, end: 20190603

REACTIONS (3)
  - Agranulocytosis [Recovered/Resolved]
  - Neutropenia [Recovering/Resolving]
  - Off label use [Unknown]

NARRATIVE: CASE EVENT DATE: 20190524
